FAERS Safety Report 4842469-4 (Version None)
Quarter: 2005Q4

REPORT INFORMATION
  Report Type: 
  Country: None (occurrence: None)
  Receive Date: 20051129
  Receipt Date: 20051117
  Transmission Date: 20060501
  Serious: Yes (Death)
  Sender: FDA-Public Use
  Company Number: 28022

PATIENT
  Age: 48 Year
  Sex: Female

DRUGS (3)
  1. NORFLEX [Suspect]
     Indication: BACK PAIN
     Dosage: (100 MG, 2 IN 1 DAY(S)), ORAL
     Route: 048
     Dates: start: 19991101, end: 20030420
  2. XANAX [Suspect]
  3. RESTORIL [Suspect]

REACTIONS (2)
  - ALCOHOL USE [None]
  - CARDIAC FAILURE CONGESTIVE [None]
